FAERS Safety Report 6592778-6 (Version None)
Quarter: 2010Q1

REPORT INFORMATION
  Report Type: 
  Country: None (occurrence: None)
  Receive Date: 20100212
  Receipt Date: 20100202
  Transmission Date: 20100710
  Serious: Yes (Death)
  Sender: FDA-Public Use
  Company Number: 2010SP000364

PATIENT
  Age: 41 Year
  Sex: Male

DRUGS (5)
  1. LUNESTA [Suspect]
     Dosage: ; ORAL
     Route: 048
     Dates: end: 20080101
  2. VENLAFAXINE [Suspect]
     Dosage: ; ORAL
     Dates: end: 20080101
  3. VERAPAMIL [Suspect]
     Dosage: ;ORAL
     Route: 048
     Dates: end: 20080101
  4. TRAZODONE HCL [Suspect]
     Dosage: ; ORAL
     Route: 048
     Dates: end: 20080101
  5. ANGIOTENSIN II ANTAGONISTS [Suspect]
     Dosage: ; ORAL
     Route: 048
     Dates: end: 20080101

REACTIONS (1)
  - COMPLETED SUICIDE [None]
